FAERS Safety Report 17745028 (Version 1)
Quarter: 2020Q2

REPORT INFORMATION
  Report Type: Spontaneous
  Country: US (occurrence: US)
  Receive Date: 20200504
  Receipt Date: 20200504
  Transmission Date: 20200714
  Serious: Yes (Death)
  Sender: FDA-Public Use
  Company Number: US-ACTELION-A-US2020-204598

PATIENT
  Sex: Female

DRUGS (1)
  1. OPSUMIT [Suspect]
     Active Substance: MACITENTAN
     Indication: PULMONARY ARTERIAL HYPERTENSION
     Dosage: 10 MG, QD
     Route: 048
     Dates: start: 20190816, end: 20200408

REACTIONS (4)
  - Haemorrhage intracranial [Fatal]
  - Hepatic encephalopathy [Fatal]
  - COVID-19 [Fatal]
  - Coronavirus test positive [Fatal]

NARRATIVE: CASE EVENT DATE: 2019
